FAERS Safety Report 4611120-0 (Version None)
Quarter: 2005Q1

REPORT INFORMATION
  Report Type: 
  Country: None (occurrence: None)
  Receive Date: 20050317
  Receipt Date: 20050215
  Transmission Date: 20050727
  Serious: Yes (Life-Threatening, Hospitalization, Other)
  Sender: FDA-Public Use
  Company Number: DE-ABBOTT-05P-062-0291384-00

PATIENT
  Age: 59 Year
  Sex: Male

DRUGS (1)
  1. TRANDOLAPRIL [Suspect]
     Indication: HYPERTENSION
     Route: 048
     Dates: start: 19950401, end: 19960326

REACTIONS (6)
  - ANURIA [None]
  - PANCREAS INFECTION [None]
  - PANCREATITIS ACUTE [None]
  - PANCREATITIS NECROTISING [None]
  - RESPIRATORY FAILURE [None]
  - SEPSIS [None]
